FAERS Safety Report 8075342-1 (Version None)
Quarter: 2012Q1

REPORT INFORMATION
  Report Type: 
  Country: None (occurrence: None)
  Receive Date: 20120127
  Receipt Date: 20120118
  Transmission Date: 20120608
  Serious: Yes (Other)
  Sender: FDA-Public Use
  Company Number: FR-TEVA-319281ISR

PATIENT
  Sex: Male

DRUGS (1)
  1. COPAXONE [Suspect]

REACTIONS (3)
  - URTICARIA [None]
  - IMMUNE SYSTEM DISORDER [None]
  - CYTOLYTIC HEPATITIS [None]
